FAERS Safety Report 9738538 (Version 2)
Quarter: 2014Q1

REPORT INFORMATION
  Report Type: Spontaneous
  Country: AR (occurrence: AR)
  Receive Date: 20131209
  Receipt Date: 20140228
  Transmission Date: 20141002
  Serious: Yes (Other)
  Sender: FDA-Public Use
  Company Number: AR-AMGEN-ARGSP2013085843

PATIENT
  Age: 65 Year
  Sex: Female

DRUGS (6)
  1. ENBREL [Suspect]
     Indication: RHEUMATOID ARTHRITIS
     Dosage: 50 MG, WEEKLY
     Route: 065
     Dates: start: 20120120
  2. METHOTREXATE [Concomitant]
     Indication: RHEUMATOID ARTHRITIS
     Dosage: 20 MG, WEEKLY
     Route: 058
  3. TRAMAL [Concomitant]
     Indication: PAIN
     Dosage: 10 ML, AS NEEDED
  4. MEMANTINE [Concomitant]
     Indication: AMNESIA
     Dosage: 10 MG, 1X/DAY
  5. DONEPEZIL HYDROCHLORIDE [Concomitant]
     Indication: AMNESIA
     Dosage: 5 MG, 1X/DAY
  6. DAFLON                             /00426001/ [Concomitant]
     Dosage: UNK
     Dates: start: 2012, end: 201401

REACTIONS (1)
  - Rheumatoid arthritis [Recovered/Resolved]
